FAERS Safety Report 8114178-X (Version None)
Quarter: 2012Q1

REPORT INFORMATION
  Report Type: 
  Country: None (occurrence: None)
  Receive Date: 20120205
  Receipt Date: 20120127
  Transmission Date: 20120608
  Serious: Yes (Other)
  Sender: FDA-Public Use
  Company Number: PHHY2012BR007622

PATIENT
  Sex: Female
  Weight: 115 kg

DRUGS (5)
  1. ATENOLOL [Concomitant]
     Indication: HYPERTENSION
     Dosage: 25 MG, BID
     Route: 048
  2. METFORMIN HCL [Concomitant]
     Indication: DIABETES MELLITUS
     Dosage: 500 MG, TWO TABLETS IN THE MORNING AND TWO TABLETS AT NIGHT
     Route: 048
  3. ASPIRIN [Concomitant]
     Indication: BLOOD PRESSURE
     Dosage: UNK
     Route: 048
  4. LOSARTAN POTASSIUM [Concomitant]
     Indication: BLOOD PRESSURE
     Dosage: 50 MG, UNK
     Route: 048
  5. VITAMIN E [Suspect]
     Indication: HEPATIC STEATOSIS
     Dosage: 400 MG, BID
     Route: 048
     Dates: start: 20111114

REACTIONS (1)
  - BLOOD PRESSURE INCREASED [None]
